FAERS Safety Report 17558879 (Version 1)
Quarter: 2020Q1

REPORT INFORMATION
  Report Type: Report from Study
  Country: NL (occurrence: NL)
  Receive Date: 20200319
  Receipt Date: 20200319
  Transmission Date: 20200409
  Serious: Yes (Hospitalization)
  Sender: FDA-Public Use
  Company Number: NL-ABBVIE-19S-114-2690501-00

PATIENT
  Sex: Male

DRUGS (6)
  1. DUODOPA [Suspect]
     Active Substance: CARBIDOPA\LEVODOPA
     Indication: PARKINSON^S DISEASE
     Dosage: MD: 2.8, CD: 3.0, ED: 1.5, CND: 2.0, END: 1.5
     Route: 050
     Dates: start: 20180725
  2. MOVICOLON [Concomitant]
     Active Substance: POLYETHYLENE GLYCOL 3350\POTASSIUM CHLORIDE\SODIUM BICARBONATE\SODIUM CHLORIDE
     Indication: PRODUCT USED FOR UNKNOWN INDICATION
  3. DUODOPA [Suspect]
     Active Substance: CARBIDOPA\LEVODOPA
     Dosage: MD 2.8 CD 3.0  NIGHT PUMP: MD 2.8 CD 2.0
     Route: 050
  4. DUODOPA [Suspect]
     Active Substance: CARBIDOPA\LEVODOPA
     Dosage: MD: 2.8 CDL 3.5 ED: 2.5 NIGHT CD: 2 ED: 1.5
     Route: 050
     Dates: start: 20180725
  5. DUODOPA [Suspect]
     Active Substance: CARBIDOPA\LEVODOPA
     Dosage: MD 2.8 CD 3.0 ED 1.5 NIGHT PUMP: MD 2.8 CD 2.0
     Route: 050
  6. MACROGOL [Concomitant]
     Active Substance: POLYETHYLENE GLYCOLS
     Indication: CONSTIPATION

REACTIONS (21)
  - Tremor [Recovered/Resolved]
  - Abnormal faeces [Recovered/Resolved]
  - Memory impairment [Not Recovered/Not Resolved]
  - Dyskinesia [Recovered/Resolved]
  - Speech disorder [Not Recovered/Not Resolved]
  - Gait disturbance [Not Recovered/Not Resolved]
  - On and off phenomenon [Not Recovered/Not Resolved]
  - Confusional state [Not Recovered/Not Resolved]
  - Fatigue [Not Recovered/Not Resolved]
  - Gastrointestinal bacterial infection [Not Recovered/Not Resolved]
  - Bacterial infection [Recovered/Resolved]
  - Fall [Not Recovered/Not Resolved]
  - Muscle rigidity [Not Recovered/Not Resolved]
  - Motor dysfunction [Not Recovered/Not Resolved]
  - Post procedural complication [Not Recovered/Not Resolved]
  - Device kink [Recovering/Resolving]
  - Hypersomnia [Not Recovered/Not Resolved]
  - Vision blurred [Not Recovered/Not Resolved]
  - Freezing phenomenon [Not Recovered/Not Resolved]
  - Nausea [Not Recovered/Not Resolved]
  - Tremor [Not Recovered/Not Resolved]
